FAERS Safety Report 6873268-X (Version None)
Quarter: 2010Q3

REPORT INFORMATION
  Report Type: 
  Country: None (occurrence: None)
  Receive Date: 20100723
  Receipt Date: 20090401
  Transmission Date: 20110219
  Serious: No
  Sender: FDA-Public Use
  Company Number: US-PFIZER INC-2009151918

PATIENT
  Sex: Female

DRUGS (5)
  1. CHANTIX [Suspect]
     Indication: SMOKING CESSATION THERAPY
     Dosage: 1 MG, 2X/DAY
     Dates: start: 20080101
  2. TRAZODONE [Concomitant]
     Indication: INSOMNIA
     Dosage: UNK
  3. AMBIEN [Concomitant]
     Indication: INSOMNIA
     Dosage: UNK
  4. TOPAMAX [Concomitant]
     Indication: INSOMNIA
     Dosage: UNK
  5. AVAPRO [Concomitant]
     Indication: HYPERTENSION
     Dosage: UNK

REACTIONS (4)
  - ABDOMINAL PAIN [None]
  - CONSTIPATION [None]
  - INSOMNIA [None]
  - WEIGHT DECREASED [None]
